FAERS Safety Report 8371234-9 (Version None)
Quarter: 2012Q2

REPORT INFORMATION
  Report Type: 
  Country: None (occurrence: None)
  Receive Date: 20120518
  Receipt Date: 20120509
  Transmission Date: 20120825
  Serious: Yes (Hospitalization)
  Sender: FDA-Public Use
  Company Number: JP-VERTEX PHARMACEUTICALS INC.-AE-2012-006749

PATIENT
  Age: 45 Year
  Sex: Male

DRUGS (10)
  1. RIBAVIRIN [Concomitant]
     Route: 048
     Dates: end: 20120502
  2. LANSOPRAZOLE [Concomitant]
     Route: 048
  3. PEGINTERFERON ALFA-2B [Concomitant]
     Route: 051
     Dates: end: 20120425
  4. LOXONIN [Concomitant]
     Dates: start: 20120308
  5. ALLEGRA [Concomitant]
     Route: 048
     Dates: start: 20120427
  6. ALLOPURINOL [Concomitant]
     Route: 048
     Dates: start: 20120327
  7. PREDNISOLONE [Concomitant]
     Route: 048
     Dates: start: 20120427
  8. ZOLPIDEM [Concomitant]
     Route: 048
  9. GASMOTIN [Concomitant]
     Route: 048
  10. TELAVIC (TELAPREVIR) [Suspect]
     Indication: HEPATITIS C
     Route: 048
     Dates: start: 20120308, end: 20120427

REACTIONS (1)
  - GENERALISED ERYTHEMA [None]
